FAERS Safety Report 5608709-9 (Version None)
Quarter: 2008Q1

REPORT INFORMATION
  Report Type: 
  Country: None (occurrence: None)
  Receive Date: 20080131
  Receipt Date: 20080118
  Transmission Date: 20080703
  Serious: Yes (Death, Hospitalization, Other)
  Sender: FDA-Public Use
  Company Number: PFIZER INC-2007097367

PATIENT
  Age: 77 Year
  Sex: Male
  Weight: 83.2 kg

DRUGS (1)
  1. SU-011,248 [Suspect]
     Indication: ADENOCARCINOMA PANCREAS
     Route: 048
     Dates: start: 20071029, end: 20071102

REACTIONS (9)
  - ADENOCARCINOMA PANCREAS [None]
  - DISEASE PROGRESSION [None]
  - DYSPNOEA [None]
  - HYPOALBUMINAEMIA [None]
  - HYPOCALCAEMIA [None]
  - LARGE INTESTINAL HAEMORRHAGE [None]
  - LYMPHOPENIA [None]
  - PNEUMONIA [None]
  - SEPSIS [None]
